FAERS Safety Report 13073675 (Version 3)
Quarter: 2018Q1

REPORT INFORMATION
  Report Type: Report from Study
  Country: DE (occurrence: DE)
  Receive Date: 20161229
  Receipt Date: 20180312
  Transmission Date: 20180508
  Serious: Yes (Death, Other)
  Sender: FDA-Public Use
  Company Number: DE-CELGENEUS-DEU-2016106696

PATIENT
  Age: 58 Year
  Sex: Male

DRUGS (4)
  1. ABRAXANE [Suspect]
     Active Substance: PACLITAXEL
     Indication: PANCREATIC CARCINOMA METASTATIC
     Dosage: 260 MG
     Route: 041
     Dates: start: 20151111, end: 20160219
  2. ABRAXANE [Suspect]
     Active Substance: PACLITAXEL
     Dosage: 100MG
     Route: 041
     Dates: start: 20160113, end: 20160127
  3. GEMCITABINE [Suspect]
     Active Substance: GEMCITABINE\GEMCITABINE HYDROCHLORIDE
     Indication: PANCREATIC CARCINOMA
     Dosage: 2100 MG
     Route: 065
     Dates: start: 20151111, end: 20160304
  4. ABRAXANE [Suspect]
     Active Substance: PACLITAXEL
     Dosage: 100MG
     Route: 041
     Dates: start: 20160226, end: 20160304

REACTIONS (2)
  - Pancreatic carcinoma metastatic [Fatal]
  - Neuropathy peripheral [Not Recovered/Not Resolved]

NARRATIVE: CASE EVENT DATE: 20151230
